FAERS Safety Report 15321920 (Version 1)
Quarter: 2018Q3

REPORT INFORMATION
  Report Type: Spontaneous
  Country: GB (occurrence: GB)
  Receive Date: 20180827
  Receipt Date: 20180827
  Transmission Date: 20181010
  Serious: Yes (Disabling)
  Sender: FDA-Public Use
  Company Number: GB-PFIZER INC-2018337600

PATIENT
  Age: 66 Year
  Sex: Female
  Weight: 65 kg

DRUGS (14)
  1. TRIMETHOPRIM. [Concomitant]
     Active Substance: TRIMETHOPRIM
     Dosage: 2 DF, DAILY
     Dates: start: 20180515, end: 20180522
  2. RANITIDINE. [Concomitant]
     Active Substance: RANITIDINE
     Dosage: AT NIGHT
     Dates: start: 20180103
  3. AZITHROMYCIN ANHYDROUS. [Concomitant]
     Active Substance: AZITHROMYCIN ANHYDROUS
     Dosage: ON MONDAY WEDNESDAY FRIDAY
     Dates: start: 20180103
  4. PREDNISOLONE. [Concomitant]
     Active Substance: PREDNISOLONE
     Dosage: RESCUE PACK.
     Dates: start: 20180511, end: 20180518
  5. ATORVASTATIN [Concomitant]
     Active Substance: ATORVASTATIN
     Indication: BLOOD CHOLESTEROL INCREASED
     Dosage: AT NIGHT
     Dates: start: 20180103
  6. IPRATROPIUM BROMIDE. [Concomitant]
     Active Substance: IPRATROPIUM BROMIDE
     Dosage: PUFFS
     Dates: start: 20180103
  7. MOMETASONE [Concomitant]
     Active Substance: MOMETASONE
     Dosage: INSTILL TWO SPRAYS INTO THE AFFECTED NOSTRIL
     Route: 045
     Dates: start: 20180103
  8. GABAPENTIN. [Suspect]
     Active Substance: GABAPENTIN
     Dosage: UNK
     Dates: start: 20180103
  9. MONTELUKAST [Concomitant]
     Active Substance: MONTELUKAST SODIUM
     Dosage: AT NIGHT
     Dates: start: 20180103
  10. DOXYCYCLINE. [Concomitant]
     Active Substance: DOXYCYCLINE
     Dosage: RESCUE PACK. TAKE 2 ON THE FIRST DAY, THEN 1 DAILY FOR 4 DAYS.
     Dates: start: 20180511, end: 20180605
  11. METOCLOPRAMIDE. [Concomitant]
     Active Substance: METOCLOPRAMIDE
     Indication: MALAISE
     Dosage: 1 DF, 3X/DAY
     Dates: start: 20180502, end: 20180530
  12. ACETYLSALICYLIC ACID [Concomitant]
     Active Substance: ASPIRIN
     Dosage: DISSOLVED IN WATER
     Dates: start: 20180103
  13. SERETIDE [Concomitant]
     Active Substance: FLUTICASONE PROPIONATE\SALMETEROL XINAFOATE
     Dosage: 2 DF, DAILY
     Route: 055
     Dates: start: 20180103
  14. VENTOLIN [Concomitant]
     Active Substance: ALBUTEROL SULFATE
     Dosage: PUFFS 4 HOURLY
     Dates: start: 20180103

REACTIONS (1)
  - Confusional state [Recovered/Resolved]

NARRATIVE: CASE EVENT DATE: 20180716
